FAERS Safety Report 9709428 (Version 2)
Quarter: 2013Q4

REPORT INFORMATION
  Report Type: Spontaneous
  Country: CH (occurrence: CH)
  Receive Date: 20131126
  Receipt Date: 20131129
  Transmission Date: 20140711
  Serious: Yes (Hospitalization, Other)
  Sender: FDA-Public Use
  Company Number: CH-009507513-1311CHE010053

PATIENT
  Age: 55 Year
  Sex: Male

DRUGS (5)
  1. REMERON [Suspect]
     Dosage: 690 MG, ONCE
     Route: 048
     Dates: start: 20131012, end: 20131012
  2. ALCOHOL [Suspect]
     Dosage: UNK
     Route: 048
     Dates: start: 20131012, end: 20131012
  3. TRANXILIUM [Concomitant]
     Dosage: 10 MG, BID
     Route: 048
  4. VENLAFAXINE HYDROCHLORIDE [Concomitant]
     Dosage: 150 MG, QD
     Route: 048
  5. LAMICTAL [Concomitant]
     Dosage: 50 MG, QD
     Route: 048

REACTIONS (7)
  - Electrocardiogram QT prolonged [Recovered/Resolved]
  - Suicide attempt [Recovered/Resolved]
  - Agitation [Recovered/Resolved]
  - Confusional state [Recovered/Resolved]
  - Hypokalaemia [Recovered/Resolved]
  - Overdose [Recovered/Resolved]
  - Wrong technique in drug usage process [Unknown]
